FAERS Safety Report 5247237-X (Version None)
Quarter: 2007Q1

REPORT INFORMATION
  Report Type: 
  Country: None (occurrence: None)
  Receive Date: 20070222
  Receipt Date: 20070222
  Transmission Date: 20070707
  Serious: Yes (Disabling)
  Sender: FDA-Public Use
  Company Number: None

PATIENT
  Sex: Female
  Weight: 52.1637 kg

DRUGS (5)
  1. LISINOPRIL [Suspect]
     Indication: HYPERTENSION
     Dosage: 10 MG DAILY ORALLY
     Route: 048
     Dates: start: 19990501
  2. LISINOPRIL [Suspect]
     Indication: HYPERTENSION
     Dosage: 20MG DAILY ORALLY
     Route: 048
     Dates: start: 19990501
  3. NEORAL [Concomitant]
  4. CELLCEPT [Concomitant]
  5. TOPROL-XL [Concomitant]

REACTIONS (4)
  - ERYTHEMA [None]
  - PHARMACEUTICAL PRODUCT COMPLAINT [None]
  - PRURITUS [None]
  - SKIN EXFOLIATION [None]
